FAERS Safety Report 7728920-0 (Version None)
Quarter: 2011Q3

REPORT INFORMATION
  Report Type: 
  Country: None (occurrence: None)
  Receive Date: 20110906
  Receipt Date: 20110823
  Transmission Date: 20111222
  Serious: Yes (Hospitalization)
  Sender: FDA-Public Use
  Company Number: CA-ELI_LILLY_AND_COMPANY-CA201108007236

PATIENT
  Age: 55 Year
  Sex: Female

DRUGS (18)
  1. MONTELUKAST SODIUM [Concomitant]
     Dosage: UNK, UNKNOWN
     Route: 065
  2. VIT D [Concomitant]
     Dosage: UNK, UNKNOWN
     Route: 065
  3. TRAZODONE HCL [Concomitant]
     Dosage: UNK, UNKNOWN
     Route: 065
  4. METFORMIN HCL [Concomitant]
     Dosage: UNK, UNKNOWN
  5. ESOMEPRAZOLE SODIUM [Concomitant]
     Dosage: UNK, UNKNOWN
     Route: 065
  6. RAMIPRIL [Concomitant]
     Dosage: UNK, UNKNOWN
     Route: 065
  7. ALVESCO [Concomitant]
     Dosage: UNK, UNKNOWN
     Route: 065
  8. SPIRIVA [Concomitant]
     Dosage: UNK, UNKNOWN
     Route: 065
  9. PREDNISONE [Concomitant]
     Dosage: UNK, UNKNOWN
     Route: 065
  10. CALCIUM CARBONATE [Concomitant]
     Dosage: UNK, UNKNOWN
     Route: 065
  11. SENNA [Concomitant]
     Dosage: UNK, UNKNOWN
     Route: 065
  12. BUPROPION HCL [Concomitant]
     Dosage: UNK, UNKNOWN
     Route: 065
  13. GABAPENTIN [Concomitant]
     Dosage: UNK, UNKNOWN
     Route: 065
  14. FLONASE [Concomitant]
     Dosage: UNK, UNKNOWN
     Route: 065
  15. OXEZE [Concomitant]
     Dosage: UNK, UNKNOWN
     Route: 065
  16. HYDROMORPHONE HCL [Concomitant]
     Dosage: UNK, UNKNOWN
     Route: 065
  17. FORTEO [Suspect]
     Indication: OSTEOPOROSIS
     Dosage: 20 UG, QD
     Route: 058
     Dates: start: 20100818
  18. VENTOLIN                                /SCH/ [Concomitant]
     Dosage: UNK, UNKNOWN
     Route: 065

REACTIONS (2)
  - DYSPHONIA [None]
  - ASTHMA [None]
